FAERS Safety Report 14204594 (Version 2)
Quarter: 2018Q1

REPORT INFORMATION
  Report Type: Spontaneous
  Country: CH (occurrence: CH)
  Receive Date: 20171120
  Receipt Date: 20180306
  Transmission Date: 20180508
  Serious: Yes (Other)
  Sender: FDA-Public Use
  Company Number: CH-PFIZER INC-2017494332

PATIENT
  Age: 64 Year
  Sex: Male
  Weight: 88 kg

DRUGS (6)
  1. AFINITOR [Suspect]
     Active Substance: EVEROLIMUS
     Indication: INVASIVE DUCTAL BREAST CARCINOMA
     Dosage: 5 MG, ALTERNATE DAY
     Dates: start: 20161228, end: 20170329
  2. MST /00036302/ [Concomitant]
     Active Substance: MORPHINE SULFATE
     Dosage: UNK
     Route: 048
     Dates: start: 20161102
  3. MARCOUMAR [Concomitant]
     Active Substance: PHENPROCOUMON
     Dosage: UNK
     Route: 048
     Dates: start: 20161228
  4. CALCIMAGON D3 [Concomitant]
     Active Substance: CALCIUM\CHOLECALCIFEROL
     Dosage: UNK
     Route: 048
     Dates: start: 20141203
  5. BENERVA [Concomitant]
     Active Substance: THIAMINE
     Dosage: UNK
     Route: 048
     Dates: start: 20141203
  6. AROMASIN [Suspect]
     Active Substance: EXEMESTANE
     Indication: INVASIVE DUCTAL BREAST CARCINOMA
     Dosage: 25 MG, UNK
     Dates: start: 20161228

REACTIONS (1)
  - Pneumonia [Unknown]
